FAERS Safety Report 15688115 (Version 1)
Quarter: 2018Q4

REPORT INFORMATION
  Report Type: Spontaneous
  Country: US (occurrence: US)
  Receive Date: 20181205
  Receipt Date: 20181205
  Transmission Date: 20190205
  Serious: No
  Sender: FDA-Public Use
  Company Number: US-EMD SERONO-9056827

PATIENT
  Sex: Female

DRUGS (1)
  1. REBIF [Suspect]
     Active Substance: INTERFERON BETA-1A
     Indication: MULTIPLE SCLEROSIS

REACTIONS (6)
  - Anxiety [Unknown]
  - Treatment noncompliance [Unknown]
  - Memory impairment [Unknown]
  - Nervousness [Unknown]
  - Depressed mood [Unknown]
  - Needle fatigue [Unknown]
